FAERS Safety Report 10563203 (Version 1)
Quarter: 2014Q4

REPORT INFORMATION
  Report Type: Spontaneous
  Country: US (occurrence: None)
  Receive Date: 20141103
  Receipt Date: 20141103
  Transmission Date: 20150529
  Serious: Yes (Life-Threatening)
  Sender: FDA-Public Use
  Company Number: None

PATIENT
  Age: 44 Year
  Sex: Female
  Weight: 66.68 kg

DRUGS (1)
  1. AVELOX [Suspect]
     Active Substance: MOXIFLOXACIN HYDROCHLORIDE
     Indication: SINUSITIS

REACTIONS (7)
  - Diarrhoea [None]
  - Vomiting projectile [None]
  - Blood pressure decreased [None]
  - Cardiac disorder [None]
  - Flushing [None]
  - Palpitations [None]
  - Tetany [None]
